FAERS Safety Report 5763449-0 (Version None)
Quarter: 2008Q2

REPORT INFORMATION
  Report Type: 
  Country: None (occurrence: None)
  Receive Date: 20080529
  Receipt Date: 20080429
  Transmission Date: 20081010
  Serious: Yes (Hospitalization)
  Sender: FDA-Public Use
  Company Number: US-JNJFOC-20080407709

PATIENT
  Age: 67 Year
  Sex: Female

DRUGS (3)
  1. DACOGEN [Suspect]
     Indication: PANCREATIC CARCINOMA
     Dosage: 10 MG/M2, INTRAVENOUS ; 10 MG/M2, INTRAVENOUS
     Route: 042
     Dates: start: 20080324, end: 20080328
  2. DACOGEN [Suspect]
     Indication: PANCREATIC CARCINOMA
     Dosage: 10 MG/M2, INTRAVENOUS ; 10 MG/M2, INTRAVENOUS
     Route: 042
     Dates: start: 20080407
  3. SODIUM PHENYLBUTYRATE (SODIUM PHENYLBUTYRATE) UNSPECIFIED [Suspect]
     Indication: DRUG USE FOR UNKNOWN INDICATION
     Dosage: 3 G, 3 IN 1 DAY

REACTIONS (4)
  - CHEST PAIN [None]
  - CONSTIPATION [None]
  - OFF LABEL USE [None]
  - VOMITING [None]
